FAERS Safety Report 8244863-0 (Version None)
Quarter: 2012Q1

REPORT INFORMATION
  Report Type: 
  Country: None (occurrence: None)
  Receive Date: 20120329
  Receipt Date: 20110706
  Transmission Date: 20120608
  Serious: No
  Sender: FDA-Public Use
  Company Number: US-MYLANLABS-2011S1014016

PATIENT
  Age: 71 Year
  Sex: Female

DRUGS (1)
  1. FENTANYL-100 [Suspect]
     Indication: PAIN
     Dosage: QOD

REACTIONS (2)
  - WITHDRAWAL SYNDROME [None]
  - DRUG ADMINISTRATION ERROR [None]
